FAERS Safety Report 15311781 (Version 2)
Quarter: 2018Q3

REPORT INFORMATION
  Report Type: Report from Study
  Country: JP (occurrence: JP)
  Receive Date: 20180823
  Receipt Date: 20180927
  Transmission Date: 20181010
  Serious: Yes (Other)
  Sender: FDA-Public Use
  Company Number: JP-VIFOR (INTERNATIONAL) INC.-VIT-2017-08219

PATIENT
  Age: 72 Year
  Sex: Male
  Weight: 71.2 kg

DRUGS (15)
  1. LASIX [Concomitant]
     Active Substance: FUROSEMIDE
     Route: 048
  2. NESP [Concomitant]
     Active Substance: DARBEPOETIN ALFA
     Dates: start: 20170222, end: 20170315
  3. TENELIA [Concomitant]
     Active Substance: TENELIGLIPTIN
     Route: 048
  4. PRECIPITATED CALCIUM CARBONATE [Concomitant]
     Active Substance: CALCIUM CARBONATE
     Indication: HYPERPHOSPHATAEMIA
     Route: 048
  5. LASIX [Concomitant]
     Active Substance: FUROSEMIDE
     Route: 048
  6. MYSER [Concomitant]
     Active Substance: DIFLUPREDNATE
     Route: 050
     Dates: start: 20161111
  7. HIRUDOID [Concomitant]
     Active Substance: GLYCOSAMINOGLYCANS
     Route: 050
     Dates: start: 20161111
  8. PL COMBINATION [Concomitant]
     Indication: UPPER RESPIRATORY TRACT INFLAMMATION
     Route: 050
     Dates: start: 20170116, end: 20170121
  9. NU?LOTAN [Concomitant]
     Active Substance: LOSARTAN POTASSIUM
     Route: 048
  10. NESP [Concomitant]
     Active Substance: DARBEPOETIN ALFA
     Dates: end: 20170118
  11. BASEN [Concomitant]
     Active Substance: VOGLIBOSE
     Route: 048
  12. ADALAT?CR40 [Concomitant]
     Route: 048
  13. MEPTIN [Concomitant]
     Active Substance: PROCATEROL HYDROCHLORIDE
     Route: 050
     Dates: start: 20161226
  14. NESP [Concomitant]
     Active Substance: DARBEPOETIN ALFA
     Dates: start: 20170125, end: 20170215
  15. VELPHORO [Suspect]
     Active Substance: FERRIC OXYHYDROXIDE
     Indication: HYPERPHOSPHATAEMIA
     Route: 048
     Dates: start: 20161125

REACTIONS (5)
  - Abdominal pain upper [Recovered/Resolved]
  - Haemoglobin increased [Recovering/Resolving]
  - Gastrooesophageal reflux disease [Recovering/Resolving]
  - Duodenal ulcer [Recovering/Resolving]
  - Diarrhoea [Recovering/Resolving]

NARRATIVE: CASE EVENT DATE: 20161223
